FAERS Safety Report 13166103 (Version 1)
Quarter: 2017Q1

REPORT INFORMATION
  Report Type: Spontaneous
  Country: US (occurrence: US)
  Receive Date: 20170127
  Receipt Date: 20170127
  Transmission Date: 20170428
  Serious: Yes (Other)
  Sender: FDA-Public Use
  Company Number: None

PATIENT
  Age: 41 Year
  Sex: Female

DRUGS (1)
  1. OPSUMIT [Suspect]
     Active Substance: MACITENTAN
     Indication: PULMONARY ARTERIAL HYPERTENSION
     Route: 048
     Dates: start: 20161125

REACTIONS (4)
  - Disease progression [None]
  - Pulmonary arterial hypertension [None]
  - Treatment noncompliance [None]
  - Cardiac failure congestive [None]

NARRATIVE: CASE EVENT DATE: 20170112
